FAERS Safety Report 9202413 (Version 2)
Quarter: 2013Q4

REPORT INFORMATION
  Report Type: Spontaneous
  Country: US (occurrence: US)
  Receive Date: 20130401
  Receipt Date: 20131217
  Transmission Date: 20140711
  Serious: Yes (Hospitalization, Disabling)
  Sender: FDA-Public Use
  Company Number: US-BAYER-2013-038939

PATIENT
  Age: 35 Year
  Sex: Female

DRUGS (5)
  1. YAZ [Suspect]
     Route: 048
  2. YASMIN [Suspect]
  3. OCELLA [Suspect]
  4. PRISTIQ [Concomitant]
     Dosage: 50 MG, UNK
     Route: 048
     Dates: start: 20080714, end: 20080822
  5. NORCO [Concomitant]
     Indication: PAIN
     Dosage: 5/325 MG, ONE TO TWO TABLETS AS NEEDED

REACTIONS (7)
  - Gallbladder injury [None]
  - Cholecystitis chronic [None]
  - Biliary dyskinesia [None]
  - Injury [None]
  - General physical health deterioration [None]
  - Emotional distress [None]
  - Pain [None]
